FAERS Safety Report 11899572 (Version 2)
Quarter: 2016Q3

REPORT INFORMATION
  Report Type: Spontaneous
  Country: US (occurrence: US)
  Receive Date: 20160108
  Receipt Date: 20160805
  Transmission Date: 20161109
  Serious: No
  Sender: FDA-Public Use
  Company Number: US-ABBVIE-15P-163-1471673-00

PATIENT
  Sex: Female

DRUGS (3)
  1. VIEKIRA PAK [Suspect]
     Active Substance: DASABUVIR\OMBITASVIR\PARITAPREVIR\RITONAVIR
     Indication: CHRONIC HEPATITIS C
     Route: 048
  2. RIBAVIRIN. [Suspect]
     Active Substance: RIBAVIRIN
     Indication: HEPATITIS C
     Route: 048
  3. RIBAVIRIN. [Suspect]
     Active Substance: RIBAVIRIN
     Route: 048

REACTIONS (20)
  - Depression [Recovered/Resolved]
  - Memory impairment [Unknown]
  - Bedridden [Unknown]
  - Personality change [Unknown]
  - Feeling abnormal [Unknown]
  - Asthenia [Unknown]
  - Visual impairment [Unknown]
  - Stress [Unknown]
  - Fatigue [Recovering/Resolving]
  - Adverse drug reaction [Unknown]
  - Coordination abnormal [Unknown]
  - Decreased appetite [Recovered/Resolved]
  - Sleep disorder [Recovered/Resolved]
  - Confusional state [Recovered/Resolved]
  - Anxiety [Unknown]
  - Nausea [Recovered/Resolved]
  - Dizziness [Unknown]
  - Tremor [Unknown]
  - Fall [Unknown]
  - Vomiting [Recovered/Resolved]
